FAERS Safety Report 18186636 (Version 2)
Quarter: 2023Q2

REPORT INFORMATION
  Report Type: Report from Study
  Country: FR (occurrence: None)
  Receive Date: 20200824
  Receipt Date: 20230502
  Transmission Date: 20230721
  Serious: Yes (Hospitalization, Other)
  Sender: FDA-Public Use
  Company Number: FR-ROCHE-2624807

PATIENT
  Age: 53 Year
  Sex: Female

DRUGS (5)
  1. ATEZOLIZUMAB [Suspect]
     Active Substance: ATEZOLIZUMAB
     Indication: Non-small cell lung cancer
     Dosage: EVERY 1 CYCLES DAY 1 OF CYCLE OF 21 DAYS
     Route: 041
     Dates: start: 20200420, end: 20200629
  2. BEVACIZUMAB [Suspect]
     Active Substance: BEVACIZUMAB
     Indication: Non-small cell lung cancer
     Dosage: EVERY 1 CYCLES DAY 1 OF CYCLE OF 21 DAYS, 400MG
     Route: 042
     Dates: start: 20200420, end: 20200629
  3. PEMETREXED [Concomitant]
     Active Substance: PEMETREXED
     Indication: Non-small cell lung cancer
     Dosage: EVERY 1 CYCLE(S) DAY1 OF CYCLE OF 21 DAYS
     Route: 042
     Dates: start: 20200420
  4. CISPLATIN [Concomitant]
     Active Substance: CISPLATIN
     Indication: Non-small cell lung cancer
     Dosage: EVERY 1 CYCLE(S) DAY1 OF CYCLE OF 21 DAYS
     Route: 042
     Dates: start: 20200420
  5. INNOHEP [Concomitant]
     Active Substance: TINZAPARIN SODIUM
     Indication: Deep vein thrombosis
     Route: 058
     Dates: start: 20200402

REACTIONS (5)
  - Pyrexia [Recovered/Resolved]
  - Pain in extremity [Recovered/Resolved]
  - Anaemia [Recovered/Resolved]
  - Overdose [Unknown]
  - Hypothyroidism [Recovered/Resolved]

NARRATIVE: CASE EVENT DATE: 20200504
